FAERS Safety Report 8081150-8 (Version None)
Quarter: 2012Q1

REPORT INFORMATION
  Report Type: 
  Country: None (occurrence: None)
  Receive Date: 20120130
  Receipt Date: 20120119
  Transmission Date: 20120608
  Serious: Yes (Other)
  Sender: FDA-Public Use
  Company Number: DK-VIIV HEALTHCARE LIMITED-A0963302A

PATIENT
  Age: 40 Year
  Sex: Female

DRUGS (2)
  1. KALETRA [Suspect]
     Indication: ANTIRETROVIRAL THERAPY
     Dosage: 4TAB PER DAY
     Route: 048
     Dates: start: 20080306
  2. EPZICOM [Suspect]
     Indication: ANTIRETROVIRAL THERAPY
     Dosage: 1TAB PER DAY
     Route: 048
     Dates: start: 20061214

REACTIONS (5)
  - MATERNAL EXPOSURE DURING PREGNANCY [None]
  - CYSTITIS [None]
  - C-REACTIVE PROTEIN INCREASED [None]
  - ABORTION INDUCED [None]
  - UTERINE LEIOMYOMA [None]
